FAERS Safety Report 23627148 (Version 1)
Quarter: 2024Q1

REPORT INFORMATION
  Report Type: Spontaneous
  Country: US (occurrence: None)
  Receive Date: 20240312
  Receipt Date: 20240312
  Transmission Date: 20240410
  Serious: Yes (Other)
  Sender: FDA-Public Use
  Company Number: None

PATIENT
  Age: 74 Year
  Sex: Male
  Weight: 78.3 kg

DRUGS (17)
  1. INDOMETHACIN [Suspect]
     Active Substance: INDOMETHACIN
     Indication: Gout
     Dosage: OTHER QUANTITY : 1 CAPSULE(S);?FREQUENCY : EVERY 12 HOURS;?
     Route: 048
     Dates: start: 20240113, end: 20240302
  2. COLCHICINE [Suspect]
     Active Substance: COLCHICINE
  3. ALLOPURINOL [Suspect]
     Active Substance: ALLOPURINOL
  4. ALLOPURINOL [Concomitant]
     Active Substance: ALLOPURINOL
  5. GABAPENTIN [Concomitant]
     Active Substance: GABAPENTIN
  6. ATOMOXETINE. [Concomitant]
     Active Substance: ATOMOXETINE HYDROCHLORIDE
  7. TADALAFIL [Concomitant]
     Active Substance: TADALAFIL
  8. ATENOLOL [Concomitant]
     Active Substance: ATENOLOL
  9. FLECAINIDE [Concomitant]
     Active Substance: FLECAINIDE
  10. ASCORBIC ACID [Concomitant]
     Active Substance: ASCORBIC ACID
  11. VITAMINS D3 [Concomitant]
  12. Vitamins E [Concomitant]
  13. Ashwagandha Mg [Concomitant]
  14. glycinate [Concomitant]
  15. FLUTICASONE [Concomitant]
     Active Substance: FLUTICASONE
  16. PROPIONATE [Concomitant]
  17. loratidine [Concomitant]

REACTIONS (3)
  - Drug interaction [None]
  - Anxiety [None]
  - Disease recurrence [None]

NARRATIVE: CASE EVENT DATE: 20240224
